FAERS Safety Report 7571999-X (Version None)
Quarter: 2011Q2

REPORT INFORMATION
  Report Type: 
  Country: None (occurrence: None)
  Receive Date: 20110624
  Receipt Date: 20110620
  Transmission Date: 20111010
  Serious: Yes (Other)
  Sender: FDA-Public Use
  Company Number: US-ABBOTT-11P-163-0733576-00

PATIENT
  Age: 76 Year
  Sex: Female

DRUGS (3)
  1. PRILOSEC [Suspect]
     Indication: PRODUCT USED FOR UNKNOWN INDICATION
  2. FLAGYL [Suspect]
     Indication: PRODUCT USED FOR UNKNOWN INDICATION
  3. BIAXIN [Suspect]
     Indication: PRODUCT USED FOR UNKNOWN INDICATION

REACTIONS (9)
  - WEIGHT DECREASED [None]
  - NAUSEA [None]
  - INFLUENZA LIKE ILLNESS [None]
  - ASTHENIA [None]
  - MALAISE [None]
  - GASTROENTERITIS VIRAL [None]
  - GASTRIC MUCOSAL HYPERTROPHY [None]
  - HELICOBACTER INFECTION [None]
  - VOMITING [None]
